FAERS Safety Report 22367714 (Version 3)
Quarter: 2023Q2

REPORT INFORMATION
  Report Type: Report from Study
  Country: US (occurrence: US)
  Receive Date: 20230525
  Receipt Date: 20230621
  Transmission Date: 20230722
  Serious: Yes (Hospitalization)
  Sender: FDA-Public Use
  Company Number: US-AMGEN-USACT2023087708

PATIENT
  Age: 72 Year
  Sex: Male
  Weight: 74.1 kg

DRUGS (2)
  1. SOTORASIB [Suspect]
     Active Substance: SOTORASIB
     Indication: Non-small cell lung cancer
     Dosage: TOTAL DOSE ADMINISTERED: 21120 MILLIGRAM
     Route: 065
     Dates: end: 20230511
  2. SOTORASIB [Suspect]
     Active Substance: SOTORASIB
     Dosage: DOSE LEVEL REDUCTION
     Route: 065
     Dates: start: 20230523

REACTIONS (3)
  - Hypoxia [Recovering/Resolving]
  - Pneumonia [Recovering/Resolving]
  - Dyspnoea [Recovering/Resolving]

NARRATIVE: CASE EVENT DATE: 20230511
